FAERS Safety Report 7963930-X (Version None)
Quarter: 2011Q4

REPORT INFORMATION
  Report Type: 
  Country: None (occurrence: None)
  Receive Date: 20111208
  Receipt Date: 20111202
  Transmission Date: 20120403
  Serious: Yes (Hospitalization)
  Sender: FDA-Public Use
  Company Number: US-JNJFOC-20110408249

PATIENT
  Sex: Female

DRUGS (7)
  1. VANCOMYCIN [Suspect]
     Indication: POST PROCEDURAL INFECTION
  2. ZOCOR [Concomitant]
  3. METFORMIN HCL [Concomitant]
  4. LISINOPRIL [Concomitant]
  5. HYDROCHLOROTHIAZIDE [Concomitant]
  6. LEVAQUIN [Suspect]
     Indication: POST PROCEDURAL INFECTION
     Route: 048
     Dates: start: 20090512, end: 20090520
  7. METOPROLOL TARTRATE [Concomitant]

REACTIONS (5)
  - RENAL FAILURE ACUTE [None]
  - ACUTE GENERALISED EXANTHEMATOUS PUSTULOSIS [None]
  - DEPRESSION [None]
  - STEVENS-JOHNSON SYNDROME [None]
  - ANXIETY [None]
